FAERS Safety Report 21850580 (Version 1)
Quarter: 2023Q1

REPORT INFORMATION
  Report Type: Spontaneous
  Country: US (occurrence: US)
  Receive Date: 20230111
  Receipt Date: 20230111
  Transmission Date: 20230418
  Serious: No
  Sender: FDA-Public Use
  Company Number: US-NEUROCRINE BIOSCIENCES INC.-2022NBI09323

PATIENT

DRUGS (2)
  1. INGREZZA [Suspect]
     Active Substance: VALBENAZINE
     Indication: Tardive dyskinesia
     Dosage: 40 MILLIGRAM, DAILY AT BEDTIME
     Route: 065
  2. KLONOPIN [Suspect]
     Active Substance: CLONAZEPAM
     Dosage: 0.5 MILLIGRAM, AT NIGHT

REACTIONS (2)
  - Tachycardia [Unknown]
  - Dry mouth [Unknown]
